FAERS Safety Report 9559363 (Version 1)
Quarter: 2013Q3

REPORT INFORMATION
  Report Type: Spontaneous
  Country: US (occurrence: None)
  Receive Date: 20130906
  Receipt Date: 20130906
  Transmission Date: 20140515
  Serious: Yes (Other)
  Sender: FDA-Public Use
  Company Number: 163-POMAL-13080111

PATIENT
  Age: 84 Year
  Sex: Female

DRUGS (15)
  1. POMALYST [Suspect]
     Indication: PLASMA CELL MYELOMA
     Dosage: 4 MG, 1 IN 1 D PO
     Route: 048
     Dates: start: 201307
  2. LEVOTHYROXINE(LEVOTHYROXINE) [Concomitant]
  3. MECLIZINE(MECLOZINE) [Concomitant]
  4. PREVACID DR (LANSOPRAZOLE) [Concomitant]
  5. PESERVISION(TABLETS) [Concomitant]
  6. GLUCOSAMINE(GLUCOSAMINE) [Concomitant]
  7. CALCIUM + VITAMIN D (CALCIUM D ^STADA^) [Concomitant]
  8. CENTRUM SILVER (CENTRUM SILVER) [Concomitant]
  9. DETROL(TOLTERODINE L-TARTRATE) [Concomitant]
  10. TYLENOL EXTRA STRENGTH(PARACETAMOL) [Concomitant]
  11. AMLODIPINE BESTYLATE(AMLODIPINE BSILATE) [Concomitant]
  12. DEXAMETHASONE(DEXAMETHASONE) [Concomitant]
  13. PROCHLORPERAZINE(PROCHLORPERAZINE) [Concomitant]
  14. PROPRANOLOL ER (PROPRANOLOL) [Concomitant]
  15. CRESTOR (ROSUVASTATIN) [Concomitant]

REACTIONS (2)
  - Skin discolouration [None]
  - Pruritus [None]
